FAERS Safety Report 24682155 (Version 2)
Quarter: 2025Q3

REPORT INFORMATION
  Report Type: Spontaneous
  Country: CH (occurrence: CH)
  Receive Date: 20241130
  Receipt Date: 20250809
  Transmission Date: 20251021
  Serious: Yes (Hospitalization, Other)
  Sender: ALEXION PHARMACEUTICALS
  Company Number: None

PATIENT
  Age: 188 Day
  Sex: Female
  Weight: 6.2 kg

DRUGS (1)
  1. NIRSEVIMAB [Suspect]
     Active Substance: NIRSEVIMAB
     Indication: Immunisation
     Route: 065
     Dates: start: 20241104, end: 20241104

REACTIONS (1)
  - Intussusception [Recovered/Resolved]

NARRATIVE: CASE EVENT DATE: 20241105
